FAERS Safety Report 14322390 (Version 1)
Quarter: 2017Q4

REPORT INFORMATION
  Report Type: Spontaneous
  Country: DE (occurrence: DE)
  Receive Date: 20171225
  Receipt Date: 20171225
  Transmission Date: 20180321
  Serious: Yes (Hospitalization, Other)
  Sender: FDA-Public Use
  Company Number: PHHY2016DE185874

PATIENT
  Age: 81 Year
  Sex: Female

DRUGS (7)
  1. VENLAFAXINE HYDROCHLORIDE. [Interacting]
     Active Substance: VENLAFAXINE HYDROCHLORIDE
     Indication: PSYCHOTIC DISORDER
  2. RISPERIDONE. [Suspect]
     Active Substance: RISPERIDONE
     Indication: MAJOR DEPRESSION
     Dosage: 4 MG, UNK
     Route: 065
  3. CEFUROXIME. [Concomitant]
     Active Substance: CEFUROXIME
     Indication: URINARY TRACT INFECTION
     Route: 065
  4. RISPERIDONE. [Interacting]
     Active Substance: RISPERIDONE
     Indication: PSYCHOTIC DISORDER
  5. VENLAFAXINE HYDROCHLORIDE. [Interacting]
     Active Substance: VENLAFAXINE HYDROCHLORIDE
     Indication: MAJOR DEPRESSION
     Dosage: UPTO 187.5 MG
     Route: 065
  6. NORTRIPTYLINE [Concomitant]
     Active Substance: NORTRIPTYLINE
     Indication: MAJOR DEPRESSION
     Route: 065
  7. METRONIDAZOLE. [Interacting]
     Active Substance: METRONIDAZOLE
     Indication: CLOSTRIDIUM DIFFICILE COLITIS
     Dosage: DAILY DOSAGE OF 1200 MG IN THE FORM OF 400 MG TABLETS
     Route: 065

REACTIONS (12)
  - Hyponatraemia [Recovering/Resolving]
  - Fatigue [Unknown]
  - Drug interaction [Unknown]
  - Dehydration [Unknown]
  - Antipsychotic drug level increased [Recovering/Resolving]
  - Dizziness [Recovering/Resolving]
  - Urinary tract infection pseudomonal [Unknown]
  - Headache [Recovering/Resolving]
  - Clostridium colitis [Unknown]
  - Orthostatic hypotension [Recovering/Resolving]
  - Nosocomial infection [Unknown]
  - Hypotension [Unknown]
